FAERS Safety Report 10946305 (Version 1)
Quarter: 2015Q1

REPORT INFORMATION
  Report Type: Spontaneous
  Country: GB (occurrence: GB)
  Receive Date: 20150323
  Receipt Date: 20150323
  Transmission Date: 20150721
  Serious: Yes (Other)
  Sender: FDA-Public Use
  Company Number: GB-WATSON-2015-05679

PATIENT
  Age: 6 Year
  Sex: Male
  Weight: 34 kg

DRUGS (2)
  1. VALPROIC ACID (UNKNOWN) [Suspect]
     Active Substance: VALPROIC ACID
     Indication: EPILEPSY
     Dosage: 600 MG, BID
     Route: 048
     Dates: start: 201402
  2. LAMOTRIGINE (UNKNOWN) [Suspect]
     Active Substance: LAMOTRIGINE
     Indication: EPILEPSY
     Dosage: 30 MG, UNKNOWN
     Route: 048
     Dates: start: 201410

REACTIONS (1)
  - Intention tremor [Not Recovered/Not Resolved]

NARRATIVE: CASE EVENT DATE: 201501
